FAERS Safety Report 5813699-X (Version None)
Quarter: 2008Q3

REPORT INFORMATION
  Report Type: 
  Country: None (occurrence: None)
  Receive Date: 20080711
  Receipt Date: 20080707
  Transmission Date: 20090109
  Serious: Yes (Other)
  Sender: FDA-Public Use
  Company Number: 029467

PATIENT
  Age: 28 Year
  Sex: Female
  Weight: 61.2 kg

DRUGS (1)
  1. CLARAVIS [Suspect]
     Indication: ACNE
     Dosage: 30 MG, BID, ORAL
     Route: 048
     Dates: start: 20080405, end: 20080514

REACTIONS (2)
  - MENTAL DISORDER [None]
  - SUICIDAL IDEATION [None]
